FAERS Safety Report 24255260 (Version 8)
Quarter: 2025Q3

REPORT INFORMATION
  Report Type: Report from Study
  Country: CO (occurrence: CO)
  Receive Date: 20240827
  Receipt Date: 20250812
  Transmission Date: 20251020
  Serious: Yes (Other)
  Sender: TAKEDA
  Company Number: CO-TAKEDA-2022TUS030960

PATIENT
  Age: 26 Year
  Sex: Male
  Weight: 51.4 kg

DRUGS (1)
  1. VEDOLIZUMAB [Suspect]
     Active Substance: VEDOLIZUMAB
     Indication: Crohn^s disease

REACTIONS (14)
  - Haematochezia [Unknown]
  - Rectal haemorrhage [Unknown]
  - Taste disorder [Recovered/Resolved]
  - Cough [Unknown]
  - Weight increased [Unknown]
  - Anaemia [Unknown]
  - Mouth haemorrhage [Unknown]
  - Diarrhoea [Unknown]
  - Weight decreased [Unknown]
  - Epistaxis [Unknown]
  - Abdominal pain [Unknown]
  - Asthenia [Unknown]
  - Headache [Unknown]
  - Arthralgia [Unknown]

NARRATIVE: CASE EVENT DATE: 20220420
